FAERS Safety Report 10233237 (Version 2)
Quarter: 2015Q1

REPORT INFORMATION
  Report Type: Spontaneous
  Country: US (occurrence: US)
  Receive Date: 20140612
  Receipt Date: 20140612
  Transmission Date: 20150720
  Serious: Yes (Other)
  Sender: FDA-Public Use
  Company Number: US-ACTAVIS-2014-11947

PATIENT
  Age: 8 Year
  Sex: Male

DRUGS (5)
  1. FEXOFENADINE (AMALLC) [Suspect]
     Active Substance: FEXOFENADINE HYDROCHLORIDE
     Indication: SEASONAL ALLERGY
     Dosage: 180 MG, DAILY
     Route: 065
  2. CETIRIZINE HYDROCHLORIDE (AELLC) [Suspect]
     Active Substance: CETIRIZINE HYDROCHLORIDE
     Indication: SEASONAL ALLERGY
     Dosage: 10 MG, BID
     Route: 065
  3. DIPHENHYDRAMINE (WATSON LABORATORIES) [Suspect]
     Active Substance: DIPHENHYDRAMINE
     Indication: SEASONAL ALLERGY
     Dosage: 25 MG, QHS
     Route: 065
  4. LORATADINE (WATSON LABORATORIES) [Suspect]
     Active Substance: LORATADINE
     Indication: SEASONAL ALLERGY
     Dosage: 5 MG, BID
     Route: 065
  5. MONTELUKAST [Concomitant]
     Active Substance: MONTELUKAST SODIUM
     Indication: ASTHMA
     Dosage: UNKNOWN
     Route: 065

REACTIONS (1)
  - Chronic spontaneous urticaria [Recovered/Resolved]
